FAERS Safety Report 23634103 (Version 1)
Quarter: 2024Q1

REPORT INFORMATION
  Report Type: Spontaneous
  Country: PL (occurrence: PL)
  Receive Date: 20240314
  Receipt Date: 20240314
  Transmission Date: 20240409
  Serious: Yes (Life-Threatening)
  Sender: FDA-Public Use
  Company Number: None

PATIENT
  Age: 62 Year
  Sex: Male
  Weight: 90 kg

DRUGS (4)
  1. ERBITUX [Suspect]
     Active Substance: CETUXIMAB
     Indication: Colon cancer
     Dosage: 1055 MG, OTHER, CETUXIMAB MERCK
     Route: 042
     Dates: start: 20200226, end: 20200226
  2. IRINOTECAN [Suspect]
     Active Substance: IRINOTECAN
     Indication: Colon cancer
     Dosage: 379.8 MG, UNKNOWN, IRINOTECAN ACCORD
     Route: 042
     Dates: start: 20200226, end: 20200226
  3. LEUCOVORIN [Suspect]
     Active Substance: LEUCOVORIN\LEUCOVORIN CALCIUM
     Indication: Colon cancer
     Dosage: 422 MG, UNKNOWN, LEUCOVORINE SANDOZ
     Route: 042
     Dates: start: 20200226, end: 20200228
  4. FLUOROURACIL [Suspect]
     Active Substance: FLUOROURACIL
     Indication: Colon cancer
     Dosage: 4220 MG, OTHER, 5-FLUOROURACIL EBEWE
     Route: 042
     Dates: start: 20200226, end: 20200228

REACTIONS (1)
  - Neutropenia [Unknown]

NARRATIVE: CASE EVENT DATE: 20200311
